FAERS Safety Report 12571851 (Version 1)
Quarter: 2016Q3

REPORT INFORMATION
  Report Type: Spontaneous
  Country: US (occurrence: US)
  Receive Date: 20160719
  Receipt Date: 20160719
  Transmission Date: 20161109
  Serious: No
  Sender: FDA-Public Use
  Company Number: US-BAUSCH-BL-2015-020199

PATIENT
  Sex: Male

DRUGS (2)
  1. CLONAZEPAM. [Concomitant]
     Active Substance: CLONAZEPAM
     Indication: PRODUCT USED FOR UNKNOWN INDICATION
  2. XIFAXAN [Suspect]
     Active Substance: RIFAXIMIN
     Indication: AMMONIA INCREASED
     Route: 048

REACTIONS (3)
  - Drug ineffective [Unknown]
  - Nausea [Unknown]
  - Fatigue [Unknown]
